FAERS Safety Report 18955304 (Version 2)
Quarter: 2021Q1

REPORT INFORMATION
  Report Type: Spontaneous
  Country: US (occurrence: US)
  Receive Date: 20210301
  Receipt Date: 20210303
  Transmission Date: 20210420
  Serious: Yes (Death, Life-Threatening, Other)
  Sender: FDA-Public Use
  Company Number: US-PFIZER INC-2021187888

PATIENT
  Age: 55 Year
  Sex: Female

DRUGS (1)
  1. AMLODIPINE BESILATE [Suspect]
     Active Substance: AMLODIPINE BESYLATE
     Dosage: UNK, INGESTION OF ^HALF A BOTTLE^
     Route: 048

REACTIONS (3)
  - Respiratory failure [Fatal]
  - Overdose [Fatal]
  - Circulatory collapse [Fatal]
